FAERS Safety Report 9508861 (Version 1)
Quarter: 2013Q3

REPORT INFORMATION
  Report Type: Spontaneous
  Country: US (occurrence: US)
  Receive Date: 20130909
  Receipt Date: 20130909
  Transmission Date: 20140515
  Serious: No
  Sender: FDA-Public Use
  Company Number: US-BRISTOL-MYERS SQUIBB COMPANY-17392507

PATIENT
  Age: 47 Year
  Sex: Female
  Weight: 97.5 kg

DRUGS (2)
  1. ABILIFY TABS [Suspect]
     Indication: ANXIETY
     Dates: start: 20130212
  2. ABILIFY TABS [Suspect]
     Indication: DEPRESSION
     Dates: start: 20130212

REACTIONS (3)
  - Parosmia [Unknown]
  - Dysgeusia [Unknown]
  - Wrong technique in drug usage process [Unknown]
